FAERS Safety Report 5827013-7 (Version None)
Quarter: 2008Q3

REPORT INFORMATION
  Report Type: 
  Country: None (occurrence: None)
  Receive Date: 20080725
  Receipt Date: 20050420
  Transmission Date: 20090109
  Serious: Yes (Hospitalization)
  Sender: FDA-Public Use
  Company Number: 1-16406201

PATIENT
  Age: 19 Year
  Sex: Female
  Weight: 75 kg

DRUGS (4)
  1. AMMONAPS (SODIUM PHENYLBUTYRATE), UNSPECIFIED [Suspect]
     Indication: ARGININOSUCCINATE LYASE DEFICIENCY
     Dosage: 4 G 4 TIMES A DAY, PO
     Route: 048
     Dates: start: 19990720
  2. L-CARNITINE [Concomitant]
  3. ARGININE HYDROCHLORIDE [Concomitant]
  4. POTASSIUM CHLORIDE [Concomitant]

REACTIONS (3)
  - ATRIOVENTRICULAR BLOCK FIRST DEGREE [None]
  - ATRIOVENTRICULAR BLOCK SECOND DEGREE [None]
  - EPILEPSY [None]
